FAERS Safety Report 5311764-7 (Version None)
Quarter: 2007Q2

REPORT INFORMATION
  Report Type: 
  Country: None (occurrence: None)
  Receive Date: 20070430
  Receipt Date: 20060323
  Transmission Date: 20071010
  Serious: No
  Sender: FDA-Public Use
  Company Number: 2006UW05119

PATIENT
  Age: 76 Year
  Sex: Male
  Weight: 99.7 kg

DRUGS (10)
  1. NEXIUM [Suspect]
     Indication: REFLUX OESOPHAGITIS
     Route: 048
     Dates: start: 20060106
  2. DARVOCET-N 100 [Concomitant]
     Route: 048
  3. ASPIRIN [Concomitant]
     Route: 048
  4. PLAVIX [Concomitant]
  5. CENTRUM SILVER [Concomitant]
     Route: 048
  6. SPIRIVA [Concomitant]
     Route: 055
  7. MECLIZINE [Concomitant]
  8. DITROPAN [Concomitant]
  9. ZOLOFT [Concomitant]
     Route: 048
  10. ZOCOR [Concomitant]
     Route: 048

REACTIONS (4)
  - GLOSSODYNIA [None]
  - ORAL MUCOSAL BLISTERING [None]
  - THROAT IRRITATION [None]
  - TONGUE DISCOLOURATION [None]
